FAERS Safety Report 7741264-6 (Version None)
Quarter: 2011Q3

REPORT INFORMATION
  Report Type: 
  Country: None (occurrence: None)
  Receive Date: 20110909
  Receipt Date: 20110902
  Transmission Date: 20111222
  Serious: Yes (Other)
  Sender: FDA-Public Use
  Company Number: US-US-EMD SERONO, INC.-7080798

PATIENT
  Sex: Female

DRUGS (3)
  1. REBIF [Suspect]
     Indication: MULTIPLE SCLEROSIS
     Route: 058
     Dates: start: 20081218
  2. PAMELOR [Concomitant]
     Indication: DEPRESSION
  3. ZOLOFT [Concomitant]
     Indication: DEPRESSION

REACTIONS (8)
  - NAUSEA [None]
  - ATAXIA [None]
  - FALL [None]
  - CONTUSION [None]
  - INJECTION SITE ERYTHEMA [None]
  - OPTIC NEURITIS [None]
  - SLEEP DISORDER [None]
  - FATIGUE [None]
